FAERS Safety Report 9617220 (Version 2)
Quarter: 2013Q4

REPORT INFORMATION
  Report Type: Spontaneous
  Country: US (occurrence: US)
  Receive Date: 20131011
  Receipt Date: 20131011
  Transmission Date: 20140711
  Serious: No
  Sender: FDA-Public Use
  Company Number: US-AMGEN-USASP2013066615

PATIENT
  Age: 82 Year
  Sex: Female

DRUGS (9)
  1. PROLIA [Suspect]
     Indication: OSTEOPOROSIS
     Dosage: 60 MG, Q6MO
     Route: 058
     Dates: start: 20120907
  2. CALCIUM [Concomitant]
  3. VITAMIN D                          /00107901/ [Concomitant]
  4. HYDROCHLOROTHIAZIDE [Concomitant]
  5. OMEPRAZOLE [Concomitant]
  6. IRBESARTAN [Concomitant]
  7. PRAVASTATIN [Concomitant]
  8. VITAMIN B6 [Concomitant]
  9. CREON [Concomitant]

REACTIONS (3)
  - Bone pain [Unknown]
  - Arthralgia [Unknown]
  - Pain in extremity [Recovering/Resolving]
